FAERS Safety Report 7943334-6 (Version None)
Quarter: 2011Q4

REPORT INFORMATION
  Report Type: 
  Country: None (occurrence: None)
  Receive Date: 20111128
  Receipt Date: 20111123
  Transmission Date: 20120403
  Serious: Yes (Death)
  Sender: FDA-Public Use
  Company Number: PHHY2011DE103183

PATIENT
  Age: 44 Year
  Sex: Male

DRUGS (2)
  1. LEVITRA [Concomitant]
  2. CLOZAPINE [Suspect]
     Indication: SCHIZOPHRENIA, PARANOID TYPE
     Dosage: 287.5 MG
     Dates: start: 20090801, end: 20110427

REACTIONS (2)
  - PULMONARY EMBOLISM [None]
  - MYOCARDIAL INFARCTION [None]
